FAERS Safety Report 8257419-0 (Version None)
Quarter: 2012Q2

REPORT INFORMATION
  Report Type: 
  Country: None (occurrence: None)
  Receive Date: 20120403
  Receipt Date: 20120327
  Transmission Date: 20120825
  Serious: Yes (Other)
  Sender: FDA-Public Use
  Company Number: FR-B.I. PHARMACEUTICALS,INC./RIDGEFIELD-2012-FF-00369FF

PATIENT
  Sex: Male

DRUGS (4)
  1. AMITRIPTYLINE HCL [Concomitant]
     Route: 048
     Dates: start: 20110101
  2. PRAMIPEXOLE DIHYDROCHLORIDE [Suspect]
     Route: 048
     Dates: start: 20100101
  3. ZANEXTRA [Concomitant]
     Route: 048
     Dates: start: 20110101
  4. AZILECT [Concomitant]
     Route: 048
     Dates: start: 20100101

REACTIONS (1)
  - INAPPROPRIATE ANTIDIURETIC HORMONE SECRETION [None]
